FAERS Safety Report 5116822-8 (Version None)
Quarter: 2006Q3

REPORT INFORMATION
  Report Type: 
  Country: None (occurrence: None)
  Receive Date: 20060925
  Receipt Date: 20060908
  Transmission Date: 20061208
  Serious: Yes (Death, Life-Threatening, Disabling, Other)
  Sender: FDA-Public Use
  Company Number: US018083

PATIENT
  Age: 63 Year
  Sex: Male

DRUGS (7)
  1. TRISENOX [Suspect]
     Indication: ACUTE PROMYELOCYTIC LEUKAEMIA
     Dosage: 8.025 MG Q72HR INTRAVENOUS DRIP
     Route: 041
     Dates: start: 20051208, end: 20051222
  2. DALTEPARIN SODIUM [Concomitant]
  3. FAMOTIDINE [Concomitant]
  4. BROTIZOLAM [Concomitant]
  5. CARBAZOCHROME SODIUM SULFONATE [Concomitant]
  6. TRANEXAMIC ACID [Concomitant]
  7. SODIUM BICARBONATE [Concomitant]

REACTIONS (10)
  - ACTIVATED PARTIAL THROMBOPLASTIN TIME PROLONGED [None]
  - BLOOD FIBRINOGEN DECREASED [None]
  - BLOOD LACTATE DEHYDROGENASE INCREASED [None]
  - CEREBRAL HAEMORRHAGE [None]
  - DEPRESSED LEVEL OF CONSCIOUSNESS [None]
  - DISEASE PROGRESSION [None]
  - DISSEMINATED INTRAVASCULAR COAGULATION [None]
  - FIBRIN DEGRADATION PRODUCTS INCREASED [None]
  - LEUKOCYTOSIS [None]
  - PROTHROMBIN TIME PROLONGED [None]
